FAERS Safety Report 8871907 (Version 1)
Quarter: 2012Q4

REPORT INFORMATION
  Report Type: 
  Country: US (occurrence: US)
  Receive Date: 20121026
  Receipt Date: 20121026
  Transmission Date: 20130627
  Serious: No
  Sender: FDA-Public Use
  Company Number: US-AMGEN-USASP2012048941

PATIENT
  Sex: Female

DRUGS (5)
  1. ENBREL [Suspect]
     Indication: PRODUCT USED FOR UNKNOWN INDICATION
     Dosage: 50 mg, qwk
     Route: 058
  2. MELOXICAM [Concomitant]
     Dosage: 7.5 mg, UNK
  3. LEFLUNOMIDE [Concomitant]
     Dosage: 10 mg, UNK
  4. HUMIRA [Concomitant]
     Dosage: UNK
  5. METHOTREXATE [Concomitant]
     Dosage: UNK
     Route: 048

REACTIONS (2)
  - Blepharospasm [Unknown]
  - Drug ineffective [Unknown]
